FAERS Safety Report 10247630 (Version 1)
Quarter: 2014Q2

REPORT INFORMATION
  Report Type: Spontaneous
  Country: PT (occurrence: None)
  Receive Date: 20140617
  Receipt Date: 20140617
  Transmission Date: 20141212
  Serious: Yes (Other)
  Sender: FDA-Public Use
  Company Number: PT-20140009

PATIENT
  Age: 58 Year
  Sex: Male

DRUGS (1)
  1. GADOTERIC ACID [Suspect]
     Indication: NUCLEAR MAGNETIC RESONANCE IMAGING
     Route: 040
     Dates: start: 20140512, end: 20140521

REACTIONS (2)
  - Erythema [None]
  - Contrast media allergy [None]
